FAERS Safety Report 7504460-9 (Version None)
Quarter: 2011Q2

REPORT INFORMATION
  Report Type: 
  Country: None (occurrence: None)
  Receive Date: 20110525
  Receipt Date: 20090817
  Transmission Date: 20111010
  Serious: Yes (Death, Other)
  Sender: FDA-Public Use
  Company Number: US-BAYER-200929841NA

PATIENT
  Age: 40 Year
  Sex: Male
  Weight: 172 kg

DRUGS (18)
  1. LOTREL [Concomitant]
  2. NEOSYNEPHRINE [Concomitant]
     Dosage: UNK
     Dates: start: 20060918
  3. FENTANYL [Concomitant]
     Dosage: UNK
     Dates: start: 20060918
  4. TRASYLOL [Suspect]
     Dosage: 200ML LOADING DOSE FOLLOWED BY 50ML/HR INFUSION
     Route: 042
     Dates: end: 20060918
  5. ESMOLOL [Concomitant]
     Dosage: UNK
     Dates: start: 20060918
  6. MAGNESIUM SULFATE [Concomitant]
     Dosage: UNK
     Dates: start: 20060918
  7. LABETALOL [Concomitant]
     Dosage: UNK
     Dates: start: 20060918
  8. DIPRIVAN [Concomitant]
     Dosage: UNK
     Dates: start: 20060918
  9. SODIUM BICARBONATE [Concomitant]
     Dosage: UNK
     Dates: start: 20060918
  10. VERSED [Concomitant]
     Dosage: UNK
     Dates: start: 20060918
  11. TRASYLOL [Suspect]
     Indication: AORTIC VALVE REPLACEMENT
     Dosage: 1 MI INITIAL TEST DOSE
     Route: 042
     Dates: start: 20060918
  12. PLASMA [Concomitant]
     Dosage: 2 U, UNK
     Route: 042
     Dates: start: 20060918
  13. ALLEGRA [Concomitant]
  14. CEFUROXIME [Concomitant]
     Dosage: 1.5 GRAM
     Dates: start: 20060918
  15. MILRINONE [Concomitant]
     Dosage: UNK
     Dates: start: 20060918
  16. PLATELETS [Concomitant]
     Dosage: 10 U, UNK
     Route: 042
     Dates: start: 20060918
  17. NIPRIDE [Concomitant]
     Dosage: UNK
     Dates: start: 20060918
  18. CALCIUM CHLORIDE [Concomitant]
     Dosage: UNK
     Dates: start: 20060918

REACTIONS (20)
  - UNEVALUABLE EVENT [None]
  - RENAL INJURY [None]
  - EMOTIONAL DISTRESS [None]
  - ANXIETY [None]
  - FEAR [None]
  - HYPOXIA [None]
  - RENAL FAILURE ACUTE [None]
  - RENAL IMPAIRMENT [None]
  - INJURY [None]
  - ISCHAEMIC HEPATITIS [None]
  - RENAL FAILURE [None]
  - DEATH [None]
  - PAIN [None]
  - ANHEDONIA [None]
  - CARDIOGENIC SHOCK [None]
  - RESPIRATORY FAILURE [None]
  - SEPSIS [None]
  - MULTI-ORGAN FAILURE [None]
  - CARDIAC ARREST [None]
  - STRESS [None]
